FAERS Safety Report 17202987 (Version 1)
Quarter: 2019Q4

REPORT INFORMATION
  Report Type: Spontaneous
  Country: FR (occurrence: FR)
  Receive Date: 20191226
  Receipt Date: 20191226
  Transmission Date: 20200122
  Serious: Yes (Hospitalization)
  Sender: FDA-Public Use
  Company Number: FR-MYLANLABS-2019M1126337

PATIENT
  Age: 69 Year
  Sex: Male
  Weight: 87 kg

DRUGS (5)
  1. DALACINE                           /00166003/ [Suspect]
     Active Substance: CLINDAMYCIN
     Indication: PLEURAL INFECTION BACTERIAL
     Dosage: 6 DOSAGE FORM
     Route: 042
     Dates: start: 20190731, end: 20190803
  2. SPASFON                            /00765801/ [Suspect]
     Active Substance: PHLOROGLUCINOL\1,3,5-TRIMETHOXYBENZENE
     Indication: GASTROINTESTINAL PAIN
     Dosage: 3 DOSAGE FORM, QD
     Route: 048
     Dates: start: 20190728, end: 20190814
  3. DALACINE                           /00166002/ [Suspect]
     Active Substance: CLINDAMYCIN HYDROCHLORIDE
     Indication: PLEURAL INFECTION BACTERIAL
     Dosage: 6 DOSAGE FORM, QH
     Route: 048
     Dates: start: 20190804, end: 20190814
  4. MIDAZOLAM [Suspect]
     Active Substance: MIDAZOLAM HYDROCHLORIDE
     Indication: SEDATIVE THERAPY
     Dosage: 9 MILLIGRAM, QD
     Route: 042
     Dates: start: 20190806, end: 20190816
  5. GABAPENTINE ARROW [Suspect]
     Active Substance: GABAPENTIN
     Indication: PRODUCT USED FOR UNKNOWN INDICATION
     Dosage: 4 DOSAGE FORM, QD
     Route: 048
     Dates: start: 20190726, end: 20190814

REACTIONS (2)
  - Rash maculo-papular [Recovering/Resolving]
  - Face oedema [Recovering/Resolving]

NARRATIVE: CASE EVENT DATE: 20190813
